FAERS Safety Report 6740708-6 (Version None)
Quarter: 2010Q2

REPORT INFORMATION
  Report Type: 
  Country: None (occurrence: None)
  Receive Date: 20100521
  Receipt Date: 20100512
  Transmission Date: 20101027
  Serious: No
  Sender: FDA-Public Use
  Company Number: TUK2010A00171

PATIENT
  Sex: Female

DRUGS (4)
  1. ACTOS [Suspect]
     Indication: DRUG USE FOR UNKNOWN INDICATION
     Dosage: 45 MG, 30 MG, 60 MG
     Dates: start: 20091201, end: 20100420
  2. ACTOS [Suspect]
     Indication: DRUG USE FOR UNKNOWN INDICATION
     Dosage: 45 MG, 30 MG, 60 MG
     Dates: end: 20100501
  3. ACTOS [Suspect]
     Indication: DRUG USE FOR UNKNOWN INDICATION
     Dosage: 45 MG, 30 MG, 60 MG
     Dates: start: 20100401
  4. METFORMIN [Concomitant]

REACTIONS (7)
  - ARTHRALGIA [None]
  - ASTHENIA [None]
  - DEPRESSION [None]
  - DYSPNOEA [None]
  - INSOMNIA [None]
  - VISION BLURRED [None]
  - WEIGHT INCREASED [None]
